FAERS Safety Report 4747224-1 (Version None)
Quarter: 2005Q3

REPORT INFORMATION
  Report Type: 
  Country: None (occurrence: None)
  Receive Date: 20050815
  Receipt Date: 20050803
  Transmission Date: 20060218
  Serious: Yes (Other)
  Sender: FDA-Public Use
  Company Number: 2005111715

PATIENT
  Age: 49 Year
  Sex: Female
  Weight: 90.7194 kg

DRUGS (8)
  1. NEURONTIN [Suspect]
     Indication: MUSCLE SPASMS
     Dosage: 1200 MG (400 MG, 3 IN 1 D)
  2. NEURONTIN [Suspect]
     Indication: PAIN
     Dosage: 1200 MG (400 MG, 3 IN 1 D)
  3. DILANTIN [Suspect]
     Indication: EPILEPSY
     Dosage: 600 MG (300 MG, 2 IN 1 D)
  4. DETROL [Suspect]
     Indication: HYPERTONIC BLADDER
     Dates: start: 20050101
  5. FUROSEMIDE [Concomitant]
  6. TOPAMAX [Concomitant]
  7. SEROQUEL [Concomitant]
  8. KLOR-CON [Concomitant]

REACTIONS (13)
  - ARTHRITIS INFECTIVE [None]
  - ASTHENIA [None]
  - BONE DISORDER [None]
  - CARDIAC DISORDER [None]
  - ENURESIS [None]
  - HIATUS HERNIA [None]
  - HYPERTONIC BLADDER [None]
  - INFECTION [None]
  - INSOMNIA [None]
  - LIMB DISCOMFORT [None]
  - LIP DISCOLOURATION [None]
  - RENAL PAIN [None]
  - SKIN DISCOLOURATION [None]
